FAERS Safety Report 19036897 (Version 2)
Quarter: 2021Q2

REPORT INFORMATION
  Report Type: Spontaneous
  Country: US (occurrence: US)
  Receive Date: 20210322
  Receipt Date: 20210601
  Transmission Date: 20210717
  Serious: No
  Sender: FDA-Public Use
  Company Number: US-SA-2021SA093606

PATIENT
  Sex: Female

DRUGS (6)
  1. EPINEPHRINE. [Concomitant]
     Active Substance: EPINEPHRINE
  2. DUPIXENT [Suspect]
     Active Substance: DUPILUMAB
     Indication: DERMATITIS ATOPIC
     Dosage: 300 MG, QOW
     Route: 058
  3. SYNTHROID [Concomitant]
     Active Substance: LEVOTHYROXINE SODIUM
  4. PFIZER?BIONTECH COVID?19 VACCINE [Concomitant]
     Active Substance: TOZINAMERAN
  5. THYROGEN [Concomitant]
     Active Substance: THYROTROPIN ALFA
  6. CALCITRIOL. [Concomitant]
     Active Substance: CALCITRIOL

REACTIONS (6)
  - Limb discomfort [Recovering/Resolving]
  - Injection site swelling [Recovering/Resolving]
  - Bone pain [Recovering/Resolving]
  - Oropharyngeal discomfort [Unknown]
  - Weight increased [Unknown]
  - Arthralgia [Recovering/Resolving]
